FAERS Safety Report 5435117-6 (Version None)
Quarter: 2007Q3

REPORT INFORMATION
  Report Type: 
  Country: None (occurrence: None)
  Receive Date: 20070828
  Receipt Date: 20070828
  Transmission Date: 20080115
  Serious: Yes (Death)
  Sender: FDA-Public Use
  Company Number: None

PATIENT
  Age: 68 Year
  Sex: Female
  Weight: 60.782 kg

DRUGS (1)
  1. TALC [Suspect]
     Indication: MALIGNANT PLEURAL EFFUSION
     Dosage: 5 GM ONCE INTRAPLEURA
     Route: 034
     Dates: start: 20070814, end: 20070814

REACTIONS (6)
  - ATRIAL FIBRILLATION [None]
  - DYSPNOEA [None]
  - HYPOTENSION [None]
  - MULTI-ORGAN FAILURE [None]
  - POST PROCEDURAL COMPLICATION [None]
  - SHOCK [None]
